FAERS Safety Report 15028721 (Version 1)
Quarter: 2018Q2

REPORT INFORMATION
  Report Type: Spontaneous
  Country: DE (occurrence: DE)
  Receive Date: 20180619
  Receipt Date: 20180619
  Transmission Date: 20180711
  Serious: Yes (Other)
  Sender: FDA-Public Use
  Company Number: DE-BAUSCH-BL-2018-017041

PATIENT
  Age: 1 Day
  Sex: Male
  Weight: 3.28 kg

DRUGS (8)
  1. QUETIAPINE. [Suspect]
     Active Substance: QUETIAPINE
     Indication: RESTLESSNESS
     Dosage: 250 MG PER DAY AND 150MG RETARDED
     Route: 064
     Dates: start: 20161115, end: 20170821
  2. MISOPROSTOL. [Concomitant]
     Active Substance: MISOPROSTOL
     Indication: LABOUR INDUCTION
     Route: 064
  3. FOLSAURE (NEM) [Concomitant]
     Indication: PROPHYLAXIS OF NEURAL TUBE DEFECT
     Dosage: 0. - 34.2. GESTATIONAL WEEK
     Route: 064
     Dates: start: 20161115, end: 20170713
  4. LORAZEPAM. [Suspect]
     Active Substance: LORAZEPAM
     Indication: PANIC DISORDER
     Dosage: 3 MG/DAY/ 1-3 MG/DAY, IF REQUIRED, BUT DAILY
     Route: 064
  5. PROMETHAZINE [Suspect]
     Active Substance: PROMETHAZINE\PROMETHAZINE HYDROCHLORIDE
     Indication: SLEEP DISORDER
     Dosage: 50 MG/DAY
     Route: 064
     Dates: start: 20161115, end: 20170821
  6. CYMBALTA [Suspect]
     Active Substance: DULOXETINE HYDROCHLORIDE
     Indication: DEPRESSION
     Dosage: 120 MG/DAY / VARYING DOSAGE 60-120 MG/DAY
     Route: 064
     Dates: start: 20161115, end: 20170821
  7. PREGABALIN. [Suspect]
     Active Substance: PREGABALIN
     Dosage: THERAPY RE-STARTED IN WEEK 34 PLUS 3
     Route: 064
  8. PREGABALIN. [Suspect]
     Active Substance: PREGABALIN
     Indication: ANXIETY DISORDER
     Dosage: 450 (MG/DAY)/ THERAPY STOPPED IN WEEK 5
     Route: 064

REACTIONS (2)
  - Drug withdrawal syndrome neonatal [Recovered/Resolved]
  - Respiratory disorder neonatal [Recovered/Resolved]

NARRATIVE: CASE EVENT DATE: 20170821
